FAERS Safety Report 6127003-3 (Version None)
Quarter: 2009Q1

REPORT INFORMATION
  Report Type: 
  Country: None (occurrence: None)
  Receive Date: 20090320
  Receipt Date: 20090311
  Transmission Date: 20090719
  Serious: Yes (Congenital Anomaly, Other)
  Sender: FDA-Public Use
  Company Number: IE-MERCK-0810GBR00147B1

PATIENT
  Age: 0 Day
  Sex: Male
  Weight: 2 kg

DRUGS (4)
  1. JANUVIA [Suspect]
     Indication: DIABETES MELLITUS
     Route: 064
     Dates: start: 20071106, end: 20071211
  2. INSULIN ASPART, BIPHASIC ISOPHANE [INJECTION] [Suspect]
     Indication: DIABETES MELLITUS
     Route: 064
     Dates: start: 20071106
  3. ROSIGLITAZONE MALEATE [Suspect]
     Route: 064
     Dates: end: 20071106
  4. METFORMIN [Concomitant]
     Indication: DIABETES MELLITUS
     Route: 064
     Dates: start: 20071106, end: 20071211

REACTIONS (8)
  - FOETAL GROWTH RETARDATION [None]
  - HYPOSPADIAS [None]
  - INGUINAL HERNIA [None]
  - KIDNEY MALFORMATION [None]
  - PHYSICAL TESTICLE EXAMINATION ABNORMAL [None]
  - PREMATURE BABY [None]
  - SMALL FOR DATES BABY [None]
  - TESTICULAR DISORDER [None]
